FAERS Safety Report 21019806 (Version 1)
Quarter: 2022Q2

REPORT INFORMATION
  Report Type: Report from Study
  Country: US (occurrence: US)
  Receive Date: 20220628
  Receipt Date: 20220628
  Transmission Date: 20220721
  Serious: Yes (Other)
  Sender: FDA-Public Use
  Company Number: US-JAZZ-2022-US-003933

PATIENT
  Age: 29 Year
  Sex: Female

DRUGS (10)
  1. XYWAV [Suspect]
     Active Substance: CALCIUM OXYBATE\MAGNESIUM OXYBATE\POTASSIUM OXYBATE\SODIUM OXYBATE
     Indication: Narcolepsy
     Dosage: 3.75 GRAM, BID, AT BEDTIME, REPEAT 2+1/2 TO 4 HOURS LATER
     Route: 048
     Dates: start: 202107
  2. XYWAV [Suspect]
     Active Substance: CALCIUM OXYBATE\MAGNESIUM OXYBATE\POTASSIUM OXYBATE\SODIUM OXYBATE
     Indication: Cataplexy
  3. ADVIL [Concomitant]
     Active Substance: IBUPROFEN
     Dosage: CAPLET
     Dates: start: 20150608
  4. RITALIN [Concomitant]
     Active Substance: METHYLPHENIDATE HYDROCHLORIDE
     Dosage: UNK
     Dates: start: 20150608
  5. NUVIGIL [Concomitant]
     Active Substance: ARMODAFINIL
     Dosage: UNK
     Dates: start: 20150608
  6. LORATADINE [Concomitant]
     Active Substance: LORATADINE
     Dosage: UNK
     Dates: start: 20150608
  7. FLUTICASONE [Concomitant]
     Active Substance: FLUTICASONE
     Dosage: UNK UNK, QD
     Dates: start: 20150608
  8. DEPO-PROVERA [Concomitant]
     Active Substance: MEDROXYPROGESTERONE ACETATE
     Dosage: 150 MG/ML VIAL
     Dates: start: 20150607
  9. ZOFRAN [Concomitant]
     Active Substance: ONDANSETRON HYDROCHLORIDE
     Dosage: UNK
     Dates: start: 20190131
  10. ETODOLAC [Concomitant]
     Active Substance: ETODOLAC
     Dosage: UNK
     Dates: start: 20201102

REACTIONS (4)
  - Headache [Unknown]
  - Wrong dose [Unknown]
  - Bronchitis [Unknown]
  - Back pain [Unknown]

NARRATIVE: CASE EVENT DATE: 20220208
